FAERS Safety Report 18453864 (Version 1)
Quarter: 2020Q4

REPORT INFORMATION
  Report Type: Spontaneous
  Country: US (occurrence: US)
  Receive Date: 20201102
  Receipt Date: 20201102
  Transmission Date: 20210114
  Serious: Yes (Hospitalization, Other)
  Sender: FDA-Public Use
  Company Number: US-PURDUE-USA-2020-0172842

PATIENT
  Sex: Male

DRUGS (3)
  1. SUBOXONE [Suspect]
     Active Substance: BUPRENORPHINE HYDROCHLORIDE\NALOXONE HYDROCHLORIDE
     Indication: DRUG DEPENDENCE
     Dosage: UNKNOWN DOSE
     Route: 048
  2. OXYCODONE HCL TABLETS (RHODES 91-490) [Suspect]
     Active Substance: OXYCODONE HYDROCHLORIDE
     Indication: PRODUCT USED FOR UNKNOWN INDICATION
     Dosage: 80 MG, UNK FREQUENCY
     Route: 048
  3. HEROIN [Suspect]
     Active Substance: DIAMORPHINE
     Indication: PRODUCT USED FOR UNKNOWN INDICATION
     Dosage: UNKNOWN DOSE
     Route: 065

REACTIONS (22)
  - Feeling cold [Unknown]
  - Myalgia [Unknown]
  - Vomiting [Unknown]
  - Hepatitis C [Unknown]
  - Hyperaesthesia [Unknown]
  - Psychomotor skills impaired [Unknown]
  - Constipation [Unknown]
  - Anxiety [Unknown]
  - Drug withdrawal syndrome [Unknown]
  - Sleep disorder [Unknown]
  - Decreased appetite [Unknown]
  - Feeling of despair [Unknown]
  - Nausea [Unknown]
  - Nasopharyngitis [Unknown]
  - Overdose [Unknown]
  - Drug dependence [Unknown]
  - Cold sweat [Unknown]
  - Respiration abnormal [Unknown]
  - Depression [Unknown]
  - Diarrhoea [Unknown]
  - Influenza like illness [Unknown]
  - Bone pain [Unknown]
